FAERS Safety Report 24818322 (Version 1)
Quarter: 2025Q1

REPORT INFORMATION
  Report Type: Spontaneous
  Country: US (occurrence: US)
  Receive Date: 20250108
  Receipt Date: 20250108
  Transmission Date: 20250409
  Serious: No
  Sender: MYLAN
  Company Number: US-MYLANLABS-2024M1115448

PATIENT
  Sex: Female
  Weight: 97.52 kg

DRUGS (1)
  1. ESTRADIOL TRANSDERMAL SYSTEM [Suspect]
     Active Substance: ESTRADIOL
     Indication: Menopause
     Dosage: 0.1 MILLIGRAM, QD (TWICE WEEKLY)
     Route: 062

REACTIONS (2)
  - Application site erythema [Unknown]
  - Drug ineffective [Unknown]
